FAERS Safety Report 5007802-1 (Version None)
Quarter: 2006Q2

REPORT INFORMATION
  Report Type: 
  Country: None (occurrence: None)
  Receive Date: 20060522
  Receipt Date: 20060516
  Transmission Date: 20061013
  Serious: Yes (Hospitalization)
  Sender: FDA-Public Use
  Company Number: FR-GLAXOSMITHKLINE-B0424339A

PATIENT
  Age: 62 Year
  Sex: Male

DRUGS (6)
  1. AUGMENTIN '125' [Suspect]
     Indication: PYREXIA
     Dosage: 3G PER DAY
     Route: 042
     Dates: start: 20060301, end: 20060313
  2. PARACETAMOL [Concomitant]
     Route: 065
     Dates: start: 20060301, end: 20060313
  3. ACUPAN [Concomitant]
     Route: 065
     Dates: start: 20060301, end: 20060301
  4. SOLU-MEDROL [Concomitant]
     Route: 065
     Dates: start: 20060301, end: 20060301
  5. PRIMPERAN TAB [Concomitant]
     Route: 065
     Dates: start: 20060301, end: 20060301
  6. IMODIUM [Concomitant]
     Route: 065
     Dates: start: 20060301, end: 20060301

REACTIONS (10)
  - ALANINE AMINOTRANSFERASE INCREASED [None]
  - ANOREXIA [None]
  - ASPARTATE AMINOTRANSFERASE INCREASED [None]
  - BLOOD FOLATE DECREASED [None]
  - BLOOD PHOSPHORUS INCREASED [None]
  - GALLBLADDER DISORDER [None]
  - GAMMA-GLUTAMYLTRANSFERASE INCREASED [None]
  - HEPATIC PAIN [None]
  - HEPATITIS CHOLESTATIC [None]
  - JAUNDICE [None]
